FAERS Safety Report 24599419 (Version 1)
Quarter: 2024Q4

REPORT INFORMATION
  Report Type: Spontaneous
  Country: US (occurrence: US)
  Receive Date: 20241110
  Receipt Date: 20241110
  Transmission Date: 20250114
  Serious: No
  Sender: SANOFI AVENTIS
  Company Number: US-SA-2024SA313188

PATIENT
  Sex: Male
  Weight: 63.18 kg

DRUGS (22)
  1. DUPIXENT [Suspect]
     Active Substance: DUPILUMAB
     Indication: Dermatitis atopic
     Dosage: 300 MG, Q6W
     Route: 058
  2. TYLENOL [Concomitant]
     Active Substance: ACETAMINOPHEN
  3. TRESIBA [Concomitant]
     Active Substance: INSULIN DEGLUDEC
  4. PRIVIGEN [Concomitant]
     Active Substance: HUMAN IMMUNOGLOBULIN G
  5. MINERALS\VITAMINS [Concomitant]
     Active Substance: MINERALS\VITAMINS
  6. GLUTOSE [Concomitant]
     Active Substance: DEXTROSE
  7. ELIQUIS [Concomitant]
     Active Substance: APIXABAN
  8. DEXTROSE [Concomitant]
     Active Substance: DEXTROSE MONOHYDRATE
  9. IRON [Concomitant]
     Active Substance: IRON
  10. HUMALOG [Concomitant]
     Active Substance: INSULIN LISPRO
  11. KETOCONAZOLE [Concomitant]
     Active Substance: KETOCONAZOLE
  12. LATANOPROST [Concomitant]
     Active Substance: LATANOPROST
  13. LEVOTHYROXINE\LIOTHYRONINE [Concomitant]
     Active Substance: LEVOTHYROXINE\LIOTHYRONINE
  14. METOPROLOL SUCCINATE [Concomitant]
     Active Substance: METOPROLOL SUCCINATE
  15. VITAMINS [Concomitant]
     Active Substance: VITAMINS
  16. LACTOBACILLUS COMPLEX [Concomitant]
  17. SENNA [Concomitant]
     Active Substance: SENNA LEAF\SENNOSIDES\SENNOSIDES A AND B
  18. TAMSULOSIN [Concomitant]
     Active Substance: TAMSULOSIN
  19. TOLNAFTATE [Concomitant]
     Active Substance: TOLNAFTATE
  20. TORSEMIDE [Concomitant]
     Active Substance: TORSEMIDE
  21. FLUTICASONE PROPIONATE [Concomitant]
     Active Substance: FLUTICASONE PROPIONATE
  22. BAQSIMI [Concomitant]
     Active Substance: GLUCAGON

REACTIONS (2)
  - Dizziness [Unknown]
  - Inappropriate schedule of product administration [Unknown]
